FAERS Safety Report 21562430 (Version 1)
Quarter: 2022Q4

REPORT INFORMATION
  Report Type: Spontaneous
  Country: AT (occurrence: AT)
  Receive Date: 20221107
  Receipt Date: 20221107
  Transmission Date: 20230112
  Serious: Yes (Hospitalization)
  Sender: FDA-Public Use
  Company Number: AT-BASGAGES-2022-110217

PATIENT
  Age: 70 Year
  Sex: Female

DRUGS (1)
  1. POLIDOCANOL [Suspect]
     Active Substance: POLIDOCANOL
     Indication: Varicose vein
     Dosage: ACCORDING TO SMPC (SUMMARY OF PRODUCT CHARACTERISTICS) AND RECOMMENDATIONS FOR USE; PHLEBOLOGICAL IN
     Route: 042
     Dates: start: 20220831, end: 20220831

REACTIONS (1)
  - Type I hypersensitivity [Recovered/Resolved]

NARRATIVE: CASE EVENT DATE: 20220831
